FAERS Safety Report 9791842 (Version 1)
Quarter: 2014Q1

REPORT INFORMATION
  Report Type: Spontaneous
  Country: IL (occurrence: IL)
  Receive Date: 20140102
  Receipt Date: 20140102
  Transmission Date: 20141002
  Serious: Yes (Hospitalization)
  Sender: FDA-Public Use
  Company Number: IL-INCYTE CORPORATION-2013IN003085

PATIENT
  Sex: Female

DRUGS (1)
  1. JAKAVI [Suspect]
     Indication: MYELOFIBROSIS
     Dosage: 5 MG, BID
     Route: 065

REACTIONS (1)
  - Dyspnoea [Unknown]
